FAERS Safety Report 5605965-8 (Version None)
Quarter: 2008Q1

REPORT INFORMATION
  Report Type: 
  Country: None (occurrence: None)
  Receive Date: 20080123
  Receipt Date: 20080123
  Transmission Date: 20080703
  Serious: Yes (Death)
  Sender: FDA-Public Use
  Company Number: None

PATIENT
  Age: 42 Year
  Sex: Male
  Weight: 95.2554 kg

DRUGS (2)
  1. DOLOPHINE HCL [Suspect]
     Indication: PAIN MANAGEMENT
     Dates: start: 20000201, end: 20070704
  2. DOLOPHINE HCL [Suspect]
     Indication: RHEUMATOID ARTHRITIS
     Dates: start: 20000201, end: 20070704

REACTIONS (1)
  - DEATH [None]
